FAERS Safety Report 23560078 (Version 2)
Quarter: 2024Q3

REPORT INFORMATION
  Report Type: Spontaneous
  Country: CN (occurrence: CN)
  Receive Date: 20240223
  Receipt Date: 20240717
  Transmission Date: 20241016
  Serious: Yes (Other)
  Sender: PFIZER
  Company Number: CN-PFIZER INC-PV202400024830

PATIENT
  Age: 50 Year
  Sex: Male
  Weight: 60 kg

DRUGS (3)
  1. TIGECYCLINE [Suspect]
     Active Substance: TIGECYCLINE
     Indication: Pancreatic injury
     Dosage: 50 MG, 2X/DAY (Q12H)
     Route: 041
     Dates: start: 20240217, end: 20240218
  2. LINEZOLID [Concomitant]
     Active Substance: LINEZOLID
     Indication: Pancreatic injury
     Dosage: 600 MG, 2X/DAY (Q12H)
     Route: 041
     Dates: start: 20240217, end: 20240219
  3. SODIUM CHLORIDE [Concomitant]
     Active Substance: SODIUM CHLORIDE
     Indication: Pancreatic injury
     Dosage: 100 ML, 2X/DAY (Q12H)
     Route: 041
     Dates: start: 20240217, end: 20240218

REACTIONS (3)
  - Hepatic function abnormal [Recovering/Resolving]
  - Blood bilirubin increased [Recovering/Resolving]
  - Off label use [Unknown]

NARRATIVE: CASE EVENT DATE: 20240217
